FAERS Safety Report 8796193 (Version 2)
Quarter: 2012Q4

REPORT INFORMATION
  Report Type: 
  Country: US (occurrence: US)
  Receive Date: 20120920
  Receipt Date: 20121101
  Transmission Date: 20130627
  Serious: Yes (Other)
  Sender: FDA-Public Use
  Company Number: US-PFIZER INC-2012230290

PATIENT
  Age: 70 Year
  Sex: Female
  Weight: 74.8 kg

DRUGS (7)
  1. AROMASIN [Suspect]
     Indication: BREAST CANCER METASTATIC
     Dosage: 25 mg, 1x/day
     Route: 048
     Dates: start: 201208
  2. METFORMIN [Concomitant]
     Dosage: UNK
  3. PANTOPRAZOLE [Concomitant]
     Dosage: UNK
  4. DOCOSAHEXANOIC ACID [Concomitant]
     Dosage: 350 mg, 3x/day
  5. VITAMIN D [Concomitant]
     Dosage: 5000 IU, 1x/day
  6. MELATONIN [Concomitant]
     Dosage: 21 mg, 1x/day
  7. CURCUMIN [Concomitant]
     Dosage: 5 g, 2x/day
     Dates: end: 20120917

REACTIONS (3)
  - Depression [Not Recovered/Not Resolved]
  - Fatigue [Not Recovered/Not Resolved]
  - Quality of life decreased [Unknown]
